FAERS Safety Report 17520714 (Version 1)
Quarter: 2020Q1

REPORT INFORMATION
  Report Type: Spontaneous
  Country: US (occurrence: US)
  Receive Date: 20200310
  Receipt Date: 20200310
  Transmission Date: 20200409
  Serious: No
  Sender: FDA-Public Use
  Company Number: US-PFIZER INC-2020023738

PATIENT
  Age: 77 Year
  Sex: Female

DRUGS (2)
  1. PREMARIN [Suspect]
     Active Substance: ESTROGENS, CONJUGATED
     Indication: VULVOVAGINAL DRYNESS
     Dosage: UNK, UNK (90 DAYS, 30 GRAM TUBE)
  2. PREMARIN [Suspect]
     Active Substance: ESTROGENS, CONJUGATED
     Dosage: UNK, AS NEEDED (90 DAYS, 30 GRAM TUBE, APPLY AS DIRECTED)
     Route: 061

REACTIONS (2)
  - Hot flush [Unknown]
  - Vulvovaginal pain [Unknown]
